FAERS Safety Report 15247995 (Version 1)
Quarter: 2018Q3

REPORT INFORMATION
  Report Type: Spontaneous
  Country: DE (occurrence: DE)
  Receive Date: 20180807
  Receipt Date: 20180807
  Transmission Date: 20181010
  Serious: Yes (Hospitalization)
  Sender: FDA-Public Use
  Company Number: DE-DRREDDYS-GER/GER/18/0102918

PATIENT
  Age: 63 Year
  Sex: Female
  Weight: 56 kg

DRUGS (18)
  1. CITALOPRAM [Suspect]
     Active Substance: CITALOPRAM HYDROBROMIDE
     Indication: PRODUCT USED FOR UNKNOWN INDICATION
     Dates: start: 201309, end: 201507
  2. SCHWEDENTABLETTEN [Concomitant]
     Indication: PRODUCT USED FOR UNKNOWN INDICATION
     Dosage: 2 TABLETS DAILY
     Route: 048
  3. NOCUTIL [Suspect]
     Active Substance: DESMOPRESSIN ACETATE
     Dosage: 0.1?0.05?0.05, REPORTED IN LABORATORY LETTER FROM MAR?2017
     Route: 048
  4. NOCUTIL [Suspect]
     Active Substance: DESMOPRESSIN ACETATE
     Dosage: 0.1MG?0.05MG?0.1MG, REPORTED IN LABORATORY LETTER FROM AUG?2016
     Route: 048
  5. ESTRAMON PLASTER [Concomitant]
     Dosage: DOSAGE UNKNOWN, REPORTED IN LABORATORY LETTER FROM MAR?2017
     Route: 062
     Dates: start: 2017
  6. HYDROCORTISONE. [Concomitant]
     Active Substance: HYDROCORTISONE
  7. DEKRISTOL 20.000 [Concomitant]
     Indication: PRODUCT USED FOR UNKNOWN INDICATION
     Dosage: REPORTED IN LABORATORY LETTER FROM AUG?2016
  8. IBANDRONSAURE HEXAL 3 MG/3ML [Concomitant]
     Indication: PRODUCT USED FOR UNKNOWN INDICATION
     Dosage: EVERY 3 MONTH, LAST ONE IN JAN?2017
     Dates: end: 201701
  9. RAMIPRIL. [Suspect]
     Active Substance: RAMIPRIL
     Indication: HYPERTENSION
     Route: 048
     Dates: start: 201401
  10. KOCHSALZTABLETTEN [Concomitant]
     Dosage: REPORTED IN LABORATORY LETTER FROM MAR?2017
  11. NOCUTIL [Suspect]
     Active Substance: DESMOPRESSIN ACETATE
     Dosage: 1?0.5?1 EACH INTAKE CA.1 H AFTER THE MEALS
     Route: 048
  12. ESTRAMON PLASTER [Concomitant]
     Indication: OSTEOPOROSIS POSTMENOPAUSAL
     Dosage: ESTRAMON 25 UG REPORTED IN LABORATORY LETTER FROM AUG?2016
     Route: 062
  13. HYDROCORTISONE. [Concomitant]
     Active Substance: HYDROCORTISONE
     Indication: GLUCOCORTICOID DEFICIENCY
     Dosage: 1.5 TABLETS DAILY (1?0.5?0)
     Route: 048
     Dates: start: 20140909
  14. HYDROCORTISONE. [Concomitant]
     Active Substance: HYDROCORTISONE
     Dosage: 5 MG ON MORNING ? 5 MG AT NOON, REPORTED IN LABORATORY LETTER FROM 16?MAR?2017
  15. DEKRISTOL 20.000 [Concomitant]
     Dosage: ONCE AT WEEK, REPORTED IN LABORATORY LETTER FROM MAR?2017
  16. NOCUTIL [Suspect]
     Active Substance: DESMOPRESSIN ACETATE
     Indication: INAPPROPRIATE ANTIDIURETIC HORMONE SECRETION
     Dosage: INCREASED TO 3X0.2 MG/D; FURTHER REDUCED TO MAX 0.4 MG/D
     Route: 048
     Dates: start: 201409
  17. PANTOPRAZOLE [Concomitant]
     Active Substance: PANTOPRAZOLE
     Indication: PRODUCT USED FOR UNKNOWN INDICATION
     Dosage: AS NEEDED
     Route: 048
  18. KOCHSALZTABLETTEN [Concomitant]
     Indication: PRODUCT USED FOR UNKNOWN INDICATION
     Dosage: 2 OR 3 TIMES DAILY, REPORTED IN LABORATORY LETTER FROM AUG?2016
     Route: 048

REACTIONS (13)
  - Hyponatraemia [Recovering/Resolving]
  - Muscular weakness [Unknown]
  - Abdominal discomfort [Recovered/Resolved]
  - Urticaria [Unknown]
  - Urine output decreased [Unknown]
  - Contusion [Recovering/Resolving]
  - Dysgeusia [Unknown]
  - Hypertension [Unknown]
  - Drug prescribing error [Unknown]
  - Syncope [Recovered/Resolved]
  - Headache [Not Recovered/Not Resolved]
  - Nausea [Not Recovered/Not Resolved]
  - Hyperhidrosis [Unknown]

NARRATIVE: CASE EVENT DATE: 20150526
